FAERS Safety Report 4973979-7 (Version None)
Quarter: 2006Q2

REPORT INFORMATION
  Report Type: 
  Country: None (occurrence: None)
  Receive Date: 20060410
  Receipt Date: 20060327
  Transmission Date: 20061013
  Serious: Yes (Other)
  Sender: FDA-Public Use
  Company Number: 2006043517

PATIENT
  Age: 73 Year
  Sex: Female
  Weight: 54.8852 kg

DRUGS (24)
  1. DETROL LA [Suspect]
     Indication: INCONTINENCE
     Dosage: (5 MG)
  2. LYRICA [Suspect]
     Indication: PAIN
     Dosage: 150 MG (75 MG, 2 IN D)
     Dates: start: 20060201
  3. EFFEXOR [Concomitant]
  4. ACTONEL [Concomitant]
  5. AVANDIA [Concomitant]
  6. GLIPIZIDE [Concomitant]
  7. LEVOTHYROXINE SODIUM [Concomitant]
  8. VALSARTAN [Concomitant]
  9. ZANAFLEX [Concomitant]
  10. HYDROCODONE BITARTRATE + ACETAMINOPHEN [Concomitant]
  11. FIORICET [Concomitant]
  12. ALPRAZOLAM [Concomitant]
  13. ALL OTHER THERAPEUTIC PRODUCTS (ALL OTHER THERAPEUTIC PRODUCTS) [Concomitant]
  14. RESTORIL [Concomitant]
  15. VITAMIN B12 [Concomitant]
  16. PROMETHAZINE [Concomitant]
  17. NITROQUICK (GLYCERYL TRINITRATE) [Concomitant]
  18. SENNA (SENNA) [Concomitant]
  19. LOMOTRIL (ATROPINE SULFATE, DIPHENOXYLATE HYDROCHLORIDE) [Concomitant]
  20. CALCIUM WITH VITAMIN D (CALCIM PHOSPHATE, CALCIUM SODIUM LACTATE, ERGO [Concomitant]
  21. ESTER-C (CALCIUM ASCORBATE) [Concomitant]
  22. VITAMIN E [Concomitant]
  23. MULTIVITAMIN [Concomitant]
  24. ANTACIDS (ANTACIDS) [Concomitant]

REACTIONS (7)
  - BEDRIDDEN [None]
  - BODY HEIGHT DECREASED [None]
  - LUMBAR VERTEBRAL FRACTURE [None]
  - NEUROPATHY [None]
  - OEDEMA PERIPHERAL [None]
  - OSTEOARTHRITIS [None]
  - PAIN [None]
